FAERS Safety Report 8299670-X (Version None)
Quarter: 2012Q2

REPORT INFORMATION
  Report Type: 
  Country: None (occurrence: None)
  Receive Date: 20120419
  Receipt Date: 20120413
  Transmission Date: 20120825
  Serious: Yes (Hospitalization, Other)
  Sender: FDA-Public Use
  Company Number: CA-ELI_LILLY_AND_COMPANY-CA201204005072

PATIENT
  Age: 52 Year
  Sex: Female

DRUGS (9)
  1. ACETAMINOPHEN [Concomitant]
     Dosage: 1 G, PRN
  2. PANTOPRAZOLE SODIUM [Concomitant]
     Dosage: 40 MG, UNK
  3. FORTEO [Suspect]
     Indication: OSTEOPOROSIS
     Dosage: 20 UG, QD
     Route: 058
     Dates: start: 20110817, end: 20111202
  4. ADVAIR DISKUS 100/50 [Concomitant]
  5. VENTOLIN                                /SCH/ [Concomitant]
     Dosage: UNK, PRN
  6. VITAMIN D [Concomitant]
  7. SPIRIVA [Concomitant]
     Dosage: 18 UG, UNK
  8. CALCIUM CARBONATE [Concomitant]
     Dosage: 500 MG, UNK
  9. PMS-VENLAFAXINE [Concomitant]
     Dosage: 75 MG, UNK

REACTIONS (2)
  - LUNG NEOPLASM MALIGNANT [None]
  - FRACTURE [None]
